FAERS Safety Report 6731323-9 (Version None)
Quarter: 2010Q2

REPORT INFORMATION
  Report Type: 
  Country: None (occurrence: None)
  Receive Date: 20100517
  Receipt Date: 20100517
  Transmission Date: 20101027
  Serious: Yes (Hospitalization)
  Sender: FDA-Public Use
  Company Number: None

PATIENT
  Sex: Female
  Weight: 83.4619 kg

DRUGS (1)
  1. PEGINTERFERON ALFA-2B [Suspect]
     Dosage: 150MCG/0.5ML 1 TIME A WEEK SQ
     Route: 058

REACTIONS (1)
  - LOSS OF CONSCIOUSNESS [None]
